FAERS Safety Report 17760344 (Version 1)
Quarter: 2020Q2

REPORT INFORMATION
  Report Type: Spontaneous
  Country: US (occurrence: US)
  Receive Date: 20200508
  Receipt Date: 20200508
  Transmission Date: 20200714
  Serious: Yes (Hospitalization)
  Sender: FDA-Public Use
  Company Number: US-VERTEX PHARMACEUTICALS-2020-010098

PATIENT
  Sex: Female

DRUGS (3)
  1. CAYSTON [Concomitant]
     Active Substance: AZTREONAM
  2. ALTERRA [Concomitant]
  3. TRIKAFTA [Suspect]
     Active Substance: ELEXACAFTOR\IVACAFTOR\TEZACAFTOR
     Indication: CYSTIC FIBROSIS
     Dosage: 2 TABS (100 MG ELEXACAFTOR/50 MG TEZACAFTOR/75 MG IVACAFTOR) AM; 1 1TAB (150 MG IVACAFTOR) PM
     Route: 048
     Dates: start: 20191122

REACTIONS (1)
  - Nephrolithiasis [Unknown]
